FAERS Safety Report 22271630 (Version 1)
Quarter: 2023Q2

REPORT INFORMATION
  Report Type: Spontaneous
  Country: GB (occurrence: GB)
  Receive Date: 20230502
  Receipt Date: 20230502
  Transmission Date: 20230722
  Serious: Yes (Other)
  Sender: FDA-Public Use
  Company Number: GB-JNJFOC-20230456009

PATIENT

DRUGS (1)
  1. NICORETTE [Suspect]
     Active Substance: NICOTINE
     Indication: Product used for unknown indication
     Dosage: UNK, 2 MG WAS 4 MG , TAKES 8 A DAY AS GUESS MORE LIKELY MORE
     Route: 065

REACTIONS (7)
  - Incorrect product administration duration [Not Recovered/Not Resolved]
  - Drug dependence [Not Recovered/Not Resolved]
  - Irritability [Unknown]
  - Anxiety [Unknown]
  - Depressed mood [Unknown]
  - Anger [Unknown]
  - Gastrointestinal disorder [Unknown]
